FAERS Safety Report 6829493-7 (Version None)
Quarter: 2010Q3

REPORT INFORMATION
  Report Type: 
  Country: None (occurrence: None)
  Receive Date: 20100709
  Receipt Date: 20070628
  Transmission Date: 20110219
  Serious: No
  Sender: FDA-Public Use
  Company Number: US-PFIZER INC-2007008409

PATIENT
  Sex: Female
  Weight: 47.63 kg

DRUGS (5)
  1. CHANTIX [Suspect]
     Indication: SMOKING CESSATION THERAPY
     Route: 048
     Dates: start: 20070120
  2. AMBIEN [Suspect]
     Indication: SLEEP DISORDER
     Dates: end: 20070101
  3. LAMICTAL [Concomitant]
  4. TRILEPTAL [Concomitant]
  5. XANAX [Concomitant]

REACTIONS (6)
  - ABNORMAL DREAMS [None]
  - AMNESIA [None]
  - ANXIETY [None]
  - CHEST PAIN [None]
  - FLATULENCE [None]
  - NAUSEA [None]
